FAERS Safety Report 6612781-7 (Version None)
Quarter: 2010Q1

REPORT INFORMATION
  Report Type: 
  Country: None (occurrence: None)
  Receive Date: 20100303
  Receipt Date: 20100219
  Transmission Date: 20100710
  Serious: Yes (Other)
  Sender: FDA-Public Use
  Company Number: US-TYCO HEALTHCARE/MALLINCKRODT-T201000656

PATIENT
  Sex: Female

DRUGS (1)
  1. OPTIRAY 350 [Suspect]
     Indication: RENAL CANCER
     Dosage: 80 ML, SINGLE
     Route: 042
     Dates: start: 20100219, end: 20100219

REACTIONS (6)
  - ABDOMINAL PAIN [None]
  - BURNING SENSATION [None]
  - NAUSEA [None]
  - OROPHARYNGEAL PAIN [None]
  - PRURITUS [None]
  - VOMITING [None]
